FAERS Safety Report 9333701 (Version 1)
Quarter: 2013Q2

REPORT INFORMATION
  Report Type: Spontaneous
  Country: FR (occurrence: FR)
  Receive Date: 20130606
  Receipt Date: 20130606
  Transmission Date: 20140414
  Serious: Yes (Other)
  Sender: FDA-Public Use
  Company Number: FR-ASTRAZENECA-2013SE38072

PATIENT
  Age: 27929 Day
  Sex: Male

DRUGS (7)
  1. INEXIUM [Suspect]
     Route: 048
     Dates: start: 20130304, end: 20130423
  2. CALCIPARINE [Suspect]
     Route: 058
     Dates: start: 20130322, end: 20130410
  3. AMOXICILLINE [Concomitant]
     Route: 042
     Dates: start: 20130305, end: 20130317
  4. ATURGYL [Concomitant]
     Dates: start: 20130307, end: 20130317
  5. LASILIX [Concomitant]
     Route: 048
     Dates: end: 20130410
  6. NOROXINE [Concomitant]
     Route: 048
     Dates: start: 20130320, end: 20130322
  7. NORADRENALINE [Concomitant]
     Route: 042
     Dates: start: 20130304, end: 20130320

REACTIONS (7)
  - Eosinophilia [Recovered/Resolved]
  - Renal failure chronic [Unknown]
  - Septic rash [Unknown]
  - Toxic skin eruption [Unknown]
  - Rash papular [Recovered/Resolved]
  - Pruritus [Recovered/Resolved]
  - Cholestasis [Recovering/Resolving]
